FAERS Safety Report 21408282 (Version 3)
Quarter: 2023Q1

REPORT INFORMATION
  Report Type: Report from Study
  Country: US (occurrence: US)
  Receive Date: 20221004
  Receipt Date: 20230316
  Transmission Date: 20230418
  Serious: Yes (Other)
  Sender: FDA-Public Use
  Company Number: US-MALLINCKRODT-T202205265

PATIENT
  Age: 56 Year
  Sex: Male

DRUGS (2)
  1. CORTICOTROPIN [Suspect]
     Active Substance: CORTICOTROPIN
     Indication: Neurotrophic keratopathy
     Dosage: UNKNOWN
  2. CORTICOTROPIN [Suspect]
     Active Substance: CORTICOTROPIN
     Dosage: 80 UNITS BI WEEKLY
     Route: 058

REACTIONS (6)
  - Diabetes mellitus inadequate control [Unknown]
  - Tendon disorder [Unknown]
  - Tenoplasty [Unknown]
  - Corneal disorder [Not Recovered/Not Resolved]
  - Corneal transplant [Unknown]
  - Tendon pain [Not Recovered/Not Resolved]

NARRATIVE: CASE EVENT DATE: 20220101
